FAERS Safety Report 8405804-6 (Version None)
Quarter: 2012Q2

REPORT INFORMATION
  Report Type: 
  Country: None (occurrence: None)
  Receive Date: 20120604
  Receipt Date: 20120530
  Transmission Date: 20120825
  Serious: No
  Sender: FDA-Public Use
  Company Number: US-PFIZER INC-2012130483

PATIENT
  Sex: Male
  Weight: 66.3 kg

DRUGS (6)
  1. LIPITOR [Suspect]
     Indication: BLOOD CHOLESTEROL INCREASED
     Dosage: 80 MG, 1X/DAY
     Route: 048
  2. LISINOPRIL [Concomitant]
     Dosage: 10 MG, UNK
  3. JANUVIA [Concomitant]
     Dosage: 100 MG, UNK
  4. METOPROLOL [Concomitant]
     Dosage: 25 MG, UNK
  5. PRAVASTATIN [Concomitant]
     Dosage: UNK
  6. METFORMIN [Concomitant]
     Dosage: 1000 MG, UNK

REACTIONS (3)
  - BLOOD GLUCOSE INCREASED [None]
  - HEADACHE [None]
  - DIARRHOEA [None]
